FAERS Safety Report 9508320 (Version 1)
Quarter: 2013Q3

REPORT INFORMATION
  Report Type: Spontaneous
  Country: US (occurrence: None)
  Receive Date: 20130906
  Receipt Date: 20130906
  Transmission Date: 20140515
  Serious: Yes (Disabling)
  Sender: FDA-Public Use
  Company Number: None

PATIENT
  Age: 62 Year
  Sex: Female
  Weight: 68.04 kg

DRUGS (4)
  1. SAPHRIS [Suspect]
     Indication: DEPRESSION
     Route: 060
  2. DEPAKOTE ER [Concomitant]
  3. PRISTIQ [Concomitant]
  4. VICODIN [Concomitant]

REACTIONS (1)
  - Tardive dyskinesia [None]
